FAERS Safety Report 8885273 (Version 2)
Quarter: 2012Q4

REPORT INFORMATION
  Report Type: 
  Country: US (occurrence: US)
  Receive Date: 20121102
  Receipt Date: 20121210
  Transmission Date: 20130627
  Serious: No
  Sender: FDA-Public Use
  Company Number: US-PFIZER INC-2012267081

PATIENT
  Age: 63 Year
  Sex: Male
  Weight: 84.81 kg

DRUGS (10)
  1. VIAGRA [Suspect]
     Indication: ERECTILE DYSFUNCTION
     Dosage: UNK, as needed
     Route: 048
     Dates: start: 201201
  2. VIAGRA [Suspect]
     Dosage: 50 mg, UNK
     Route: 048
     Dates: start: 201201
  3. VIAGRA [Suspect]
     Dosage: UNK
     Route: 048
     Dates: start: 2012
  4. VIAGRA [Suspect]
     Dosage: UNK, as needed
     Route: 048
     Dates: start: 2011, end: 2012
  5. METFORMIN [Concomitant]
     Indication: TYPE II DIABETES MELLITUS
     Dosage: UNK
  6. GLIPIZIDE [Concomitant]
     Indication: TYPE II DIABETES MELLITUS
     Dosage: UNK, twice a day
  7. LISINOPRIL [Concomitant]
     Dosage: UNK
  8. METHOTREXATE [Concomitant]
     Dosage: UNK
  9. PREDNISOLONE [Concomitant]
     Dosage: UNK
  10. FOLIC ACID [Concomitant]
     Dosage: UNK

REACTIONS (3)
  - Blood testosterone decreased [Unknown]
  - Drug effect incomplete [Unknown]
  - Drug ineffective [Unknown]
